FAERS Safety Report 12874667 (Version 2)
Quarter: 2016Q4

REPORT INFORMATION
  Report Type: Spontaneous
  Country: US (occurrence: US)
  Receive Date: 20161021
  Receipt Date: 20161121
  Transmission Date: 20170207
  Serious: No
  Sender: FDA-Public Use
  Company Number: US-TAKEDA-2016TUS018957

PATIENT
  Sex: Male
  Weight: 61.22 kg

DRUGS (4)
  1. DEXILANT [Suspect]
     Active Substance: DEXLANSOPRAZOLE
     Indication: GASTROOESOPHAGEAL REFLUX DISEASE
     Dosage: 60 MG, QD
     Route: 048
     Dates: start: 2006
  2. HYOSCYAMINE SULFATE. [Concomitant]
     Active Substance: HYOSCYAMINE SULFATE
     Indication: ABDOMINAL RIGIDITY
     Dosage: 0.125 MG, UNK
     Dates: start: 2009
  3. DEXILANT [Suspect]
     Active Substance: DEXLANSOPRAZOLE
     Indication: BARRETT^S OESOPHAGUS
  4. REPATHA [Concomitant]
     Active Substance: EVOLOCUMAB
     Indication: BLOOD CHOLESTEROL INCREASED
     Dosage: 75 MG, UNK
     Route: 050
     Dates: start: 201608

REACTIONS (3)
  - Incorrect drug administration duration [Not Recovered/Not Resolved]
  - Osteoporosis [Not Recovered/Not Resolved]
  - Abdominal pain [Not Recovered/Not Resolved]

NARRATIVE: CASE EVENT DATE: 2006
